FAERS Safety Report 4719357-7 (Version None)
Quarter: 2005Q3

REPORT INFORMATION
  Report Type: 
  Country: None (occurrence: None)
  Receive Date: 20050719
  Receipt Date: 20050719
  Transmission Date: 20060218
  Serious: Yes (Life-Threatening)
  Sender: FDA-Public Use
  Company Number: None

PATIENT
  Age: 81 Year
  Sex: Female
  Weight: 56.6996 kg

DRUGS (1)
  1. PREDNISONE [Suspect]
     Indication: BLOOD PRESSURE MANAGEMENT
     Dosage: 1 TABLET DAILY
     Dates: start: 20050703, end: 20050715

REACTIONS (2)
  - BLOOD PRESSURE INCREASED [None]
  - PHARYNGOLARYNGEAL PAIN [None]
